FAERS Safety Report 6643249-X (Version None)
Quarter: 2010Q1

REPORT INFORMATION
  Report Type: 
  Country: None (occurrence: None)
  Receive Date: 20100319
  Receipt Date: 20100310
  Transmission Date: 20100710
  Serious: Yes (Other)
  Sender: FDA-Public Use
  Company Number: JP-PFIZER INC-2010034860

PATIENT
  Sex: Female

DRUGS (13)
  1. LIPITOR [Suspect]
     Indication: HYPERLIPIDAEMIA
     Dosage: UNK
     Route: 048
  2. DEPAKENE [Suspect]
     Dosage: UNK
  3. ROHYPNOL [Suspect]
     Dosage: UNK
     Route: 048
  4. LUVOX [Concomitant]
     Dosage: UNK
     Route: 048
  5. DIAZEPAM [Concomitant]
     Dosage: UNK
     Route: 048
  6. CEPHADOL [Concomitant]
     Dosage: UNK
  7. LENDORMIN [Concomitant]
     Dosage: UNK
     Route: 048
  8. GASMOTIN [Concomitant]
     Dosage: UNK
     Route: 048
  9. GASCON [Concomitant]
     Dosage: UNK
  10. MUCODYNE [Concomitant]
     Dosage: UNK
  11. THEO-DUR [Concomitant]
     Dosage: UNK
  12. SENNOSIDE A+B [Concomitant]
     Dosage: UNK
  13. VEGETAMIN [Concomitant]
     Dosage: UNK

REACTIONS (2)
  - BLOOD IMMUNOGLOBULIN A DECREASED [None]
  - LEUKOENCEPHALOPATHY [None]
